FAERS Safety Report 7246905-8 (Version None)
Quarter: 2011Q1

REPORT INFORMATION
  Report Type: 
  Country: None (occurrence: None)
  Receive Date: 20110127
  Receipt Date: 20110117
  Transmission Date: 20110831
  Serious: Yes (Hospitalization)
  Sender: FDA-Public Use
  Company Number: CH-BRISTOL-MYERS SQUIBB COMPANY-15507361

PATIENT
  Age: 66 Year
  Sex: Male

DRUGS (6)
  1. TAXOTERE [Concomitant]
     Indication: HYPOPHARYNGEAL CANCER
  2. CISPLATIN [Concomitant]
     Indication: HYPOPHARYNGEAL CANCER
  3. ERBITUX [Suspect]
     Indication: HYPOPHARYNGEAL CANCER
     Route: 042
     Dates: start: 20101103
  4. ERBITUX [Suspect]
     Indication: LARYNGEAL CANCER
     Route: 042
     Dates: start: 20101103
  5. TAXOTERE [Concomitant]
     Indication: LARYNGEAL CANCER
  6. CISPLATIN [Concomitant]
     Indication: LARYNGEAL CANCER

REACTIONS (6)
  - PAIN [None]
  - PNEUMONIA ASPIRATION [None]
  - MUCOSAL INFLAMMATION [None]
  - SKIN TOXICITY [None]
  - GENERAL PHYSICAL HEALTH DETERIORATION [None]
  - DYSPHAGIA [None]
